FAERS Safety Report 23026090 (Version 2)
Quarter: 2023Q4

REPORT INFORMATION
  Report Type: Spontaneous
  Country: CA (occurrence: CA)
  Receive Date: 20231004
  Receipt Date: 20231102
  Transmission Date: 20240109
  Serious: Yes (Other)
  Sender: FDA-Public Use
  Company Number: CA-TAKEDA-2023TUS094938

PATIENT
  Age: 80 Year
  Sex: Female
  Weight: 87.7 kg

DRUGS (1)
  1. ENTYVIO [Suspect]
     Active Substance: VEDOLIZUMAB
     Indication: Colitis ulcerative
     Dosage: 300 MILLIGRAM
     Route: 042
     Dates: start: 20230913

REACTIONS (2)
  - Cellulitis [Recovered/Resolved]
  - Breast cancer female [Unknown]

NARRATIVE: CASE EVENT DATE: 20230919
